FAERS Safety Report 17374170 (Version 1)
Quarter: 2020Q1

REPORT INFORMATION
  Report Type: Spontaneous
  Country: DE (occurrence: DE)
  Receive Date: 20200205
  Receipt Date: 20200205
  Transmission Date: 20200409
  Serious: Yes (Other)
  Sender: FDA-Public Use
  Company Number: DE-PERRIGO-20DE001735

PATIENT
  Age: 53 Year
  Sex: Female
  Weight: 72 kg

DRUGS (2)
  1. VACCINES [Suspect]
     Active Substance: UNSPECIFIED INGREDIENT
     Indication: GLIOMA
     Dosage: UNK, ONCE WEEKLY (WEEKS 1, 3, 5, 11, 15, 19, 23, 27)
     Route: 058
     Dates: start: 20191113, end: 20200115
  2. IMIQUIMOD. [Suspect]
     Active Substance: IMIQUIMOD
     Indication: PRODUCT USED FOR UNKNOWN INDICATION
     Dosage: UNKNOWN, UNKNOWN
     Route: 061
     Dates: start: 20191113, end: 20200115

REACTIONS (2)
  - Application site ulcer [Recovering/Resolving]
  - Application site necrosis [Recovering/Resolving]

NARRATIVE: CASE EVENT DATE: 20191223
